FAERS Safety Report 4818948-2 (Version None)
Quarter: 2005Q4

REPORT INFORMATION
  Report Type: 
  Country: None (occurrence: None)
  Receive Date: 20051103
  Receipt Date: 20051024
  Transmission Date: 20060501
  Serious: Yes (Other)
  Sender: FDA-Public Use
  Company Number: JP-SOLVAY-00305003525

PATIENT
  Age: 27 Year
  Sex: Female

DRUGS (5)
  1. PAXIL [Concomitant]
     Indication: ILL-DEFINED DISORDER
     Dosage: DAILY DOSE: 40 MILLIGRAM(S)
     Route: 048
     Dates: start: 20050207
  2. LUVOX [Suspect]
     Indication: PANIC DISORDER
     Dosage: DAILY DOSE: 50 MILLIGRAM(S)
     Route: 048
     Dates: start: 20050307, end: 20050101
  3. ALPRAZOLAM [Concomitant]
     Indication: ILL-DEFINED DISORDER
     Dosage: DAILY DOSE: 2.8 MILLIGRAM(S)
     Route: 048
     Dates: start: 20050207
  4. MEILAX [Concomitant]
     Indication: ILL-DEFINED DISORDER
     Dosage: DAILY DOSE: 1 MILLIGRAM(S)
     Route: 048
     Dates: start: 20050207
  5. HALCION [Concomitant]
     Indication: ILL-DEFINED DISORDER
     Dosage: DAILY DOSE: .125 MILLIGRAM(S)
     Route: 048
     Dates: start: 20050207

REACTIONS (2)
  - CONVULSION [None]
  - REGRESSIVE BEHAVIOUR [None]
